FAERS Safety Report 10156230 (Version 1)
Quarter: 2014Q2

REPORT INFORMATION
  Report Type: Spontaneous
  Country: US (occurrence: US)
  Receive Date: 20140507
  Receipt Date: 20140507
  Transmission Date: 20141212
  Serious: Yes (Hospitalization)
  Sender: FDA-Public Use
  Company Number: US-AMGEN INC.-USASP2014032456

PATIENT
  Age: 54 Year
  Sex: Male

DRUGS (1)
  1. ENBREL [Suspect]
     Indication: RHEUMATOID ARTHRITIS
     Dosage: 50 MG, QWK
     Route: 065
     Dates: start: 2007

REACTIONS (10)
  - Arthropathy [Not Recovered/Not Resolved]
  - Chondropathy [Recovered/Resolved]
  - Pyrexia [Recovered/Resolved]
  - Back pain [Recovered/Resolved]
  - Incorrect dose administered [Recovered/Resolved]
  - Nausea [Recovered/Resolved]
  - Drug effect incomplete [Not Recovered/Not Resolved]
  - Thyroid disorder [Recovered/Resolved]
  - Incorrect product storage [Recovered/Resolved]
  - Nasopharyngitis [Recovered/Resolved]
